FAERS Safety Report 25829485 (Version 1)
Quarter: 2025Q3

REPORT INFORMATION
  Report Type: Report from Study
  Country: JP (occurrence: JP)
  Receive Date: 20250922
  Receipt Date: 20250922
  Transmission Date: 20251021
  Serious: Yes (Death, Other)
  Sender: TAKEDA
  Company Number: JP-TAKEDA-2025TJP002101

PATIENT
  Age: 38 Year
  Sex: Female
  Weight: 52.7 kg

DRUGS (13)
  1. MARIBAVIR [Suspect]
     Active Substance: MARIBAVIR
     Indication: Cytomegalovirus infection
     Dosage: 400 MILLIGRAM, BID
     Dates: start: 20241018, end: 20241115
  2. MARIBAVIR [Suspect]
     Active Substance: MARIBAVIR
     Dosage: 400 MILLIGRAM, BID
     Dates: start: 20250213, end: 20250303
  3. MYCOPHENOLATE MOFETIL [Suspect]
     Active Substance: MYCOPHENOLATE MOFETIL
     Indication: Product used for unknown indication
  4. ZOVIRAX [Concomitant]
     Active Substance: ACYCLOVIR
  5. Glycyron [Concomitant]
  6. LANSOPRAZOLE [Concomitant]
     Active Substance: LANSOPRAZOLE
  7. TEICOPLANIN [Concomitant]
     Active Substance: TEICOPLANIN
  8. LANSOPRAZOLE [Concomitant]
     Active Substance: LANSOPRAZOLE
  9. NOXAFIL [Concomitant]
     Active Substance: POSACONAZOLE
  10. FEXOFENADINE HYDROCHLORIDE [Concomitant]
     Active Substance: FEXOFENADINE HYDROCHLORIDE
  11. URSODIOL [Concomitant]
     Active Substance: URSODIOL
  12. PREDONINE [Concomitant]
     Active Substance: PREDNISOLONE
  13. PROGRAF [Concomitant]
     Active Substance: TACROLIMUS

REACTIONS (5)
  - Death [Fatal]
  - Feeling abnormal [Unknown]
  - Liver disorder [Unknown]
  - Taste disorder [Recovered/Resolved]
  - Immunosuppressant drug level increased [Unknown]

NARRATIVE: CASE EVENT DATE: 20241115
